FAERS Safety Report 25612599 (Version 1)
Quarter: 2025Q3

REPORT INFORMATION
  Report Type: Spontaneous
  Country: CA (occurrence: CA)
  Receive Date: 20250728
  Receipt Date: 20250728
  Transmission Date: 20251021
  Serious: Yes (Life-Threatening, Hospitalization, Other)
  Sender: FRESENIUS KABI
  Company Number: CA-FreseniusKabi-FK202510271

PATIENT
  Age: 63 Year
  Sex: Female
  Weight: 48 kg

DRUGS (4)
  1. AMIODARONE HYDROCHLORIDE [Suspect]
     Active Substance: AMIODARONE HYDROCHLORIDE
     Indication: Atrial fibrillation
     Route: 041
  2. DILANTIN INFATABS [Suspect]
     Active Substance: PHENYTOIN
     Indication: Partial seizures
     Dosage: FOA: TABLET (CHEWABLE)
     Route: 048
  3. TEGRETOL XR [Suspect]
     Active Substance: CARBAMAZEPINE
     Indication: Partial seizures
     Dosage: FOA: TABLET (EXTENDED-RELEASE)
     Route: 048
  4. AMIODARONE [Suspect]
     Active Substance: AMIODARONE
     Indication: Atrial fibrillation
     Dosage: FOA: TABLET
     Route: 048

REACTIONS (4)
  - Accidental poisoning [Recovering/Resolving]
  - Altered state of consciousness [Recovering/Resolving]
  - Diplopia [Recovering/Resolving]
  - Dyskinesia [Recovering/Resolving]
